FAERS Safety Report 6733660-0 (Version None)
Quarter: 2010Q2

REPORT INFORMATION
  Report Type: 
  Country: None (occurrence: None)
  Receive Date: 20100520
  Receipt Date: 20100510
  Transmission Date: 20101027
  Serious: Yes (Other)
  Sender: FDA-Public Use
  Company Number: US-PFIZER INC-2010059500

PATIENT
  Sex: Female
  Weight: 63.492 kg

DRUGS (4)
  1. ZYVOX [Suspect]
     Dosage: UNK
     Route: 048
     Dates: start: 20100120
  2. SOMA [Concomitant]
     Indication: PROCEDURAL PAIN
     Dosage: 350 MG, AS NEEDED
     Route: 048
  3. DILAUDID [Concomitant]
     Indication: PROCEDURAL PAIN
     Dosage: 1-2 DF, AS NEEDED
  4. MORPHINE [Concomitant]
     Indication: PROCEDURAL PAIN
     Dosage: 30 MG, 3X/DAY

REACTIONS (2)
  - ANAEMIA MACROCYTIC [None]
  - NEUROPATHY PERIPHERAL [None]
